FAERS Safety Report 5002260-5 (Version None)
Quarter: 2006Q2

REPORT INFORMATION
  Report Type: 
  Country: None (occurrence: None)
  Receive Date: 20060502
  Receipt Date: 20060419
  Transmission Date: 20061013
  Serious: Yes (Hospitalization, Other)
  Sender: FDA-Public Use
  Company Number: THYM-10914

PATIENT
  Age: 55 Year
  Sex: Female
  Weight: 92 kg

DRUGS (23)
  1. THYMOGLOBULIN [Suspect]
     Indication: HEART TRANSPLANT REJECTION
     Dosage: 90 MG QD IV
     Route: 042
     Dates: start: 20050901, end: 20050903
  2. THYMOGLOBULIN [Suspect]
     Indication: HEART TRANSPLANT REJECTION
     Dosage: 45 MG QD IV
     Route: 042
     Dates: start: 20050904, end: 20050905
  3. CELLCEPT [Concomitant]
  4. NEORAL [Concomitant]
  5. PREDNISONE TAB [Concomitant]
  6. VALCYTE [Concomitant]
  7. MINOXIDIL [Concomitant]
  8. DOXAZOSIN [Concomitant]
  9. IMDUR [Concomitant]
  10. HYDRALAZINE HCL [Concomitant]
  11. OSCAL-D [Concomitant]
  12. ASCORBIC ACID [Concomitant]
  13. FERROUS SULFATE TAB [Concomitant]
  14. MAGNESIUM SULFATE [Concomitant]
  15. MYCELEX [Concomitant]
  16. PRAVASTATIN [Concomitant]
  17. BACTRIM DS [Concomitant]
  18. PROTONIX [Concomitant]
  19. SENNA [Concomitant]
  20. MORPHINE SULFATE [Concomitant]
  21. TYLENOL W/ CODEINE NO. 3 [Concomitant]
  22. AMBIEN [Concomitant]
  23. DILAUDID [Concomitant]

REACTIONS (1)
  - SERUM SICKNESS [None]
